FAERS Safety Report 4598569-X (Version None)
Quarter: 2005Q1

REPORT INFORMATION
  Report Type: 
  Country: None (occurrence: None)
  Receive Date: 20050204
  Receipt Date: 20041110
  Transmission Date: 20050727
  Serious: Yes (Hospitalization)
  Sender: FDA-Public Use
  Company Number: PHEH2004US11570

PATIENT
  Age: 41 Year
  Sex: Male
  Weight: 68 kg

DRUGS (5)
  1. CLOZARIL [Suspect]
     Indication: SCHIZOPHRENIA
     Dosage: 500 MG, QD, ORAL; SEE IMAGE
     Route: 048
     Dates: start: 20010101, end: 20030101
  2. CLOZARIL [Suspect]
     Indication: SCHIZOPHRENIA
     Dosage: 500 MG, QD, ORAL; SEE IMAGE
     Route: 048
     Dates: start: 20030101
  3. VISTARIL [Concomitant]
  4. TOFRANIL [Concomitant]
  5. GEODON [Concomitant]

REACTIONS (3)
  - MYOCLONUS [None]
  - PSYCHOTIC DISORDER [None]
  - TIC [None]
